FAERS Safety Report 7577120-6 (Version None)
Quarter: 2011Q2

REPORT INFORMATION
  Report Type: 
  Country: None (occurrence: None)
  Receive Date: 20110628
  Receipt Date: 20110120
  Transmission Date: 20111010
  Serious: Yes (Other)
  Sender: FDA-Public Use
  Company Number: US-BAYER-201034244NA

PATIENT
  Age: 25 Year
  Sex: Female
  Weight: 73 kg

DRUGS (7)
  1. YASMIN [Suspect]
     Indication: CONTRACEPTION
     Dosage: UNK
     Dates: start: 20050101, end: 20050101
  2. ATIVAN [Concomitant]
  3. PAXIL [Concomitant]
  4. LISINOPRIL [Concomitant]
     Dosage: UNK
     Dates: start: 20050101
  5. ACE INHIBITOR NOS [Concomitant]
  6. ASPIRIN [Concomitant]
     Dosage: UNK
     Dates: start: 20060103
  7. YAZ [Suspect]
     Indication: PRODUCT USED FOR UNKNOWN INDICATION
     Dosage: UNK

REACTIONS (4)
  - PSYCHIATRIC SYMPTOM [None]
  - ANXIETY [None]
  - CEREBRAL THROMBOSIS [None]
  - TRANSVERSE SINUS THROMBOSIS [None]
